FAERS Safety Report 4429364-X (Version None)
Quarter: 2004Q3

REPORT INFORMATION
  Report Type: 
  Country: None (occurrence: None)
  Receive Date: 20040816
  Receipt Date: 20040809
  Transmission Date: 20050211
  Serious: No
  Sender: FDA-Public Use
  Company Number: ZONI001474

PATIENT
  Age: 58 Year
  Sex: Female
  Weight: 58 kg

DRUGS (8)
  1. ZONEGRAN [Suspect]
     Indication: PAIN
     Dosage: 100 MG DAILY INITIALLY PROGRESSING TO 400 MG DAILY., 1 IN 1 D; ORAL (SEE IMAGE)
     Route: 048
     Dates: start: 20031001, end: 20040701
  2. ACIPHEX [Concomitant]
  3. ESTRATEST [Concomitant]
  4. DURAGESIC [Concomitant]
  5. AMBIEN [Concomitant]
  6. VALIUM [Concomitant]
  7. DARVOCET-N 100 [Concomitant]
  8. REGLAN [Concomitant]

REACTIONS (6)
  - ALOPECIA [None]
  - ANOREXIA [None]
  - DYSURIA [None]
  - GINGIVAL RECESSION [None]
  - VAGINAL DISCHARGE [None]
  - WEIGHT DECREASED [None]
